FAERS Safety Report 8521096-1 (Version None)
Quarter: 2012Q3

REPORT INFORMATION
  Report Type: 
  Country: None (occurrence: None)
  Receive Date: 20120719
  Receipt Date: 20120718
  Transmission Date: 20120928
  Serious: Yes (Other)
  Sender: FDA-Public Use
  Company Number: SE-ROCHE-1080107

PATIENT
  Sex: Female

DRUGS (1)
  1. MABTHERA [Suspect]
     Indication: PRODUCT USED FOR UNKNOWN INDICATION
     Dates: start: 20120516, end: 20120611

REACTIONS (5)
  - MALAISE [None]
  - DIARRHOEA [None]
  - HYPOTENSION [None]
  - SYNCOPE [None]
  - VOMITING [None]
